FAERS Safety Report 15220773 (Version 1)
Quarter: 2018Q3

REPORT INFORMATION
  Report Type: Spontaneous
  Country: US (occurrence: US)
  Receive Date: 20180731
  Receipt Date: 20180731
  Transmission Date: 20181010
  Serious: Yes (Hospitalization)
  Sender: FDA-Public Use
  Company Number: US-BAYER-2018-139411

PATIENT
  Sex: Male

DRUGS (1)
  1. ADEMPAS [Suspect]
     Active Substance: RIOCIGUAT
     Indication: PULMONARY HYPERTENSION
     Dosage: 3.5 MG, QD
     Route: 048
     Dates: start: 2013

REACTIONS (6)
  - Shoulder arthroplasty [None]
  - Cardiac disorder [None]
  - Disorientation [None]
  - Feeling abnormal [None]
  - Pulmonary arterial pressure abnormal [None]
  - Fatigue [None]
